FAERS Safety Report 8835022 (Version 2)
Quarter: 2012Q4

REPORT INFORMATION
  Report Type: 
  Country: US (occurrence: US)
  Receive Date: 20121011
  Receipt Date: 20121026
  Transmission Date: 20130627
  Serious: Yes (Hospitalization)
  Sender: FDA-Public Use
  Company Number: US-AMGEN-USASP2012064125

PATIENT
  Sex: Male

DRUGS (9)
  1. NEUPOGEN [Suspect]
     Indication: PRODUCT USED FOR UNKNOWN INDICATION
  2. RITUXAN [Suspect]
     Indication: LYMPHOMA
     Dosage: 788 DF, UNK
     Dates: start: 20000322
  3. VINCRISTINE [Suspect]
     Indication: PRODUCT USED FOR UNKNOWN INDICATION
  4. GLUCOPHAGE [Concomitant]
     Dosage: 1000 mg, bid
  5. GLUCOTROL [Concomitant]
     Dosage: 10 mg, UNK
  6. AVANDIA [Concomitant]
     Dosage: 4 mg, qd
  7. CYCLOPHOSPHAMIDE [Concomitant]
  8. ADRIAMYCIN                         /00330901/ [Concomitant]
  9. PREDNISONE [Concomitant]

REACTIONS (14)
  - Neutropenia [Unknown]
  - Pyrexia [Unknown]
  - Cough [Unknown]
  - Weight decreased [Unknown]
  - Insomnia [Unknown]
  - Depression [Unknown]
  - Fatigue [Unknown]
  - Choking [Unknown]
  - Hepatic enzyme increased [Unknown]
  - Oral candidiasis [Unknown]
  - Odynophagia [Unknown]
  - Dizziness [Unknown]
  - Febrile neutropenia [Unknown]
  - Neuropathy peripheral [Unknown]
